FAERS Safety Report 9631982 (Version 1)
Quarter: 2013Q4

REPORT INFORMATION
  Report Type: Spontaneous
  Country: GB (occurrence: None)
  Receive Date: 20131015
  Receipt Date: 20131015
  Transmission Date: 20140711
  Serious: Yes (Other)
  Sender: FDA-Public Use
  Company Number: 1000117969-2013-00001

PATIENT
  Age: 44 Year
  Sex: Female

DRUGS (1)
  1. COLGATE SENSITIVE PRO-RELIEF DAILY USE [Suspect]

REACTIONS (2)
  - Hypersensitivity [None]
  - Hypoaesthesia [None]
